FAERS Safety Report 15115087 (Version 1)
Quarter: 2018Q3

REPORT INFORMATION
  Report Type: Spontaneous
  Country: CN (occurrence: CN)
  Receive Date: 20180706
  Receipt Date: 20180706
  Transmission Date: 20181010
  Serious: Yes (Other)
  Sender: FDA-Public Use
  Company Number: CN-PFIZER INC-2018269053

PATIENT
  Age: 87 Year
  Sex: Female
  Weight: 50 kg

DRUGS (3)
  1. LIPITOR [Suspect]
     Active Substance: ATORVASTATIN CALCIUM
     Indication: LIPIDS INCREASED
     Dosage: 20 MG, 1X/DAY
     Route: 048
     Dates: start: 20180501, end: 20180506
  2. XINGNAOJING [Concomitant]
     Indication: CEREBRAL INFARCTION
     Dosage: 20 ML, 1X/DAY
     Route: 041
     Dates: start: 20180501, end: 20180514
  3. KAI LIN [Concomitant]
     Indication: LUNG INFECTION
     Dosage: 3.75 G, 3X/DAY
     Route: 041
     Dates: start: 20180502, end: 20180504

REACTIONS (3)
  - Blood creatine phosphokinase increased [Recovering/Resolving]
  - Myoglobin blood increased [Recovering/Resolving]
  - Aspartate aminotransferase increased [Recovering/Resolving]

NARRATIVE: CASE EVENT DATE: 20180504
